FAERS Safety Report 15467634 (Version 1)
Quarter: 2018Q4

REPORT INFORMATION
  Report Type: Report from Study
  Country: BR (occurrence: BR)
  Receive Date: 20181005
  Receipt Date: 20181005
  Transmission Date: 20190204
  Serious: Yes (Death, Hospitalization, Disabling)
  Sender: FDA-Public Use
  Company Number: BR-EMD SERONO-E2B_90061361

PATIENT
  Sex: Female

DRUGS (1)
  1. REBIF [Suspect]
     Active Substance: INTERFERON BETA-1A
     Indication: MULTIPLE SCLEROSIS
     Route: 058
     Dates: start: 20060801, end: 2018

REACTIONS (5)
  - Bacterial infection [Fatal]
  - Epilepsy [Unknown]
  - Multiple organ dysfunction syndrome [Fatal]
  - Bedridden [Unknown]
  - Ulcer [Unknown]

NARRATIVE: CASE EVENT DATE: 2018
